FAERS Safety Report 14768673 (Version 2)
Quarter: 2018Q2

REPORT INFORMATION
  Report Type: Report from Study
  Country: US (occurrence: US)
  Receive Date: 20180417
  Receipt Date: 20180521
  Transmission Date: 20180711
  Serious: Yes (Hospitalization)
  Sender: FDA-Public Use
  Company Number: US-JNJFOC-20180303480

PATIENT
  Age: 73 Year
  Sex: Male

DRUGS (20)
  1. MIRALAX [Concomitant]
     Active Substance: POLYETHYLENE GLYCOL 3350
  2. POTASSIUM [Concomitant]
     Active Substance: POTASSIUM
  3. TRAZODONE [Concomitant]
     Active Substance: TRAZODONE HYDROCHLORIDE
  4. CRESTOR [Concomitant]
     Active Substance: ROSUVASTATIN CALCIUM
  5. METFORMIN [Concomitant]
     Active Substance: METFORMIN HYDROCHLORIDE
  6. SYMBICORT [Concomitant]
     Active Substance: BUDESONIDE\FORMOTEROL FUMARATE DIHYDRATE
  7. IMBRUVICA [Suspect]
     Active Substance: IBRUTINIB
     Indication: B-CELL SMALL LYMPHOCYTIC LYMPHOMA
     Route: 048
     Dates: start: 20170926
  8. DIAZEPAM. [Concomitant]
     Active Substance: DIAZEPAM
  9. FENOFIBRATE. [Concomitant]
     Active Substance: FENOFIBRATE
  10. ALBUTEROL SULFATE. [Concomitant]
     Active Substance: ALBUTEROL SULFATE
  11. NORVASC [Concomitant]
     Active Substance: AMLODIPINE BESYLATE
  12. ENDOCET [Concomitant]
     Active Substance: ACETAMINOPHEN\OXYCODONE HYDROCHLORIDE
  13. LASIX [Concomitant]
     Active Substance: FUROSEMIDE
  14. GABAPENTIN. [Concomitant]
     Active Substance: GABAPENTIN
  15. POLYETHYLENE [Concomitant]
     Active Substance: HIGH DENSITY POLYETHYLENE
  16. ASPIRIN. [Concomitant]
     Active Substance: ASPIRIN
  17. DIVALPROEX [Concomitant]
     Active Substance: DIVALPROEX SODIUM
  18. DONEPEZIL. [Concomitant]
     Active Substance: DONEPEZIL
  19. VENLAFAXINE [Concomitant]
     Active Substance: VENLAFAXINE HYDROCHLORIDE
  20. SALBUTAMOL SULFATE [Concomitant]
     Active Substance: ALBUTEROL SULFATE

REACTIONS (4)
  - Agitation [Unknown]
  - Bronchitis [Unknown]
  - Headache [Not Recovered/Not Resolved]
  - Blood count abnormal [Recovered/Resolved]

NARRATIVE: CASE EVENT DATE: 201801
